FAERS Safety Report 18973641 (Version 2)
Quarter: 2021Q1

REPORT INFORMATION
  Report Type: Spontaneous
  Country: ES (occurrence: ES)
  Receive Date: 20210305
  Receipt Date: 20210320
  Transmission Date: 20210420
  Serious: Yes (Death, Other)
  Sender: FDA-Public Use
  Company Number: ES-AMGEN-ESPSP2021033604

PATIENT

DRUGS (8)
  1. SECUKINUMAB. [Suspect]
     Active Substance: SECUKINUMAB
     Indication: PSORIASIS
     Dosage: UNK
     Route: 065
  2. USTEKINUMAB [Suspect]
     Active Substance: USTEKINUMAB
     Indication: PSORIASIS
     Dosage: UNK
     Route: 065
  3. IXEKIZUMAB [Suspect]
     Active Substance: IXEKIZUMAB
     Indication: PSORIASIS
     Dosage: UNK
     Route: 065
  4. ADALIMUMAB [Suspect]
     Active Substance: ADALIMUMAB
     Indication: PSORIASIS
     Dosage: UNK
     Route: 065
  5. METHOTREXATE. [Suspect]
     Active Substance: METHOTREXATE
     Indication: PSORIASIS
     Dosage: UNK
     Route: 065
  6. CYCLOSPORINE. [Suspect]
     Active Substance: CYCLOSPORINE
     Indication: PSORIASIS
     Dosage: UNK
     Route: 065
  7. APREMILAST [Suspect]
     Active Substance: APREMILAST
     Indication: PSORIASIS
     Dosage: UNK
     Route: 065
  8. INFLIXIMAB [Suspect]
     Active Substance: INFLIXIMAB
     Indication: PSORIASIS
     Dosage: UNK
     Route: 065

REACTIONS (30)
  - Death [Fatal]
  - Breast disorder [Unknown]
  - Hepatobiliary disease [Unknown]
  - Musculoskeletal disorder [Unknown]
  - Lymphatic disorder [Unknown]
  - Neoplasm malignant [Unknown]
  - Connective tissue disorder [Unknown]
  - Mental disorder [Unknown]
  - Respiratory disorder [Unknown]
  - Renal disorder [Unknown]
  - Urinary tract disorder [Unknown]
  - Benign neoplasm [Unknown]
  - Angiopathy [Unknown]
  - Ear disorder [Unknown]
  - Nervous system disorder [Unknown]
  - Reproductive tract disorder [Unknown]
  - Cardiac disorder [Unknown]
  - Metabolic disorder [Unknown]
  - Adverse event [Unknown]
  - Drug ineffective [Unknown]
  - Blood disorder [Unknown]
  - Endocrine disorder [Unknown]
  - Skin disorder [Unknown]
  - Gastrointestinal disorder [Unknown]
  - Infection [Unknown]
  - Eye disorder [Unknown]
  - Malnutrition [Unknown]
  - Neoplasm [Unknown]
  - Social problem [Unknown]
  - Immune system disorder [Unknown]
